FAERS Safety Report 16168014 (Version 1)
Quarter: 2019Q2

REPORT INFORMATION
  Report Type: Spontaneous
  Country: GB (occurrence: GB)
  Receive Date: 20190408
  Receipt Date: 20190408
  Transmission Date: 20190711
  Serious: Yes (Hospitalization, Other)
  Sender: FDA-Public Use
  Company Number: GB-009507513-1904GBR001519

PATIENT
  Sex: Female

DRUGS (1)
  1. PREVYMIS [Suspect]
     Active Substance: LETERMOVIR
     Indication: ANTIVIRAL PROPHYLAXIS
     Dosage: 2 (240 MG) TABLETS, ONCE PER DAY
     Route: 048

REACTIONS (4)
  - Circumstance or information capable of leading to medication error [Unknown]
  - Product dose omission [Unknown]
  - Gastrointestinal tube insertion [Unknown]
  - Adverse event [Unknown]
